FAERS Safety Report 13518732 (Version 1)
Quarter: 2017Q2

REPORT INFORMATION
  Report Type: Spontaneous
  Country: IT (occurrence: IT)
  Receive Date: 20170505
  Receipt Date: 20170505
  Transmission Date: 20170830
  Serious: Yes (Hospitalization)
  Sender: FDA-Public Use
  Company Number: IT-SA-2017SA079144

PATIENT
  Age: 48 Year
  Sex: Female
  Weight: 48 kg

DRUGS (6)
  1. ETAPIAM [Suspect]
     Active Substance: ETHAMBUTOL HYDROCHLORIDE
     Indication: BONE TUBERCULOSIS
     Route: 048
     Dates: start: 20110304, end: 20110505
  2. BENADON [Concomitant]
     Active Substance: PYRIDOXINE HYDROCHLORIDE
     Dosage: 300 MG
     Route: 048
     Dates: start: 20110304, end: 20110420
  3. RIFADIN [Suspect]
     Active Substance: RIFAMPIN
     Indication: BONE TUBERCULOSIS
     Route: 048
     Dates: start: 20110304, end: 20110505
  4. NICOZID [Suspect]
     Active Substance: ISONIAZID
     Indication: BONE TUBERCULOSIS
     Route: 048
     Dates: start: 20110304, end: 20110505
  5. PIRALDINA [Suspect]
     Active Substance: PYRAZINAMIDE
     Indication: BONE TUBERCULOSIS
     Route: 048
     Dates: start: 20110304, end: 20110505
  6. EUTIROX [Concomitant]
     Active Substance: LEVOTHYROXINE SODIUM
     Dosage: 50 MG
     Route: 048
     Dates: start: 20110315, end: 20110420

REACTIONS (3)
  - Dysaesthesia [Recovering/Resolving]
  - Peripheral motor neuropathy [Recovering/Resolving]
  - Paraesthesia [Recovering/Resolving]

NARRATIVE: CASE EVENT DATE: 20110420
